FAERS Safety Report 4442711-8 (Version None)
Quarter: 2004Q3

REPORT INFORMATION
  Report Type: 
  Country: None (occurrence: None)
  Receive Date: 20040903
  Receipt Date: 20040514
  Transmission Date: 20050211
  Serious: Yes (Other)
  Sender: FDA-Public Use
  Company Number: 2004UW10209

PATIENT
  Age: 60 Year
  Sex: Female
  Weight: 76.2043 kg

DRUGS (7)
  1. CRESTOR [Suspect]
     Indication: HYPERCHOLESTEROLAEMIA
     Dosage: 10 MG QD PO
     Route: 048
  2. RIFAMPIN [Concomitant]
  3. SULFAMETHOXAZOLE [Concomitant]
  4. GLUCOTROL [Concomitant]
  5. LOTRIAL [Concomitant]
  6. AVANDIA [Concomitant]
  7. BABY ACETYLSALICYLIC ACID [Concomitant]

REACTIONS (1)
  - DYSGEUSIA [None]
